FAERS Safety Report 16153109 (Version 3)
Quarter: 2019Q3

REPORT INFORMATION
  Report Type: Report from Study
  Country: US (occurrence: US)
  Receive Date: 20190403
  Receipt Date: 20190927
  Transmission Date: 20191004
  Serious: No
  Sender: FDA-Public Use
  Company Number: PHEH2019US014093

PATIENT
  Sex: Female

DRUGS (2)
  1. GILENYA [Suspect]
     Active Substance: FINGOLIMOD HYDROCHLORIDE
     Indication: MULTIPLE SCLEROSIS
     Dosage: 0.5 MG (5 DAYS A WEEK, ON SUNDAY, MONDAY, WEDNESDAY, THURSDAY AND SATURDAY)
     Route: 048
     Dates: start: 20180527
  2. GILENYA [Suspect]
     Active Substance: FINGOLIMOD HYDROCHLORIDE
     Dosage: 0.5 MG, QD
     Route: 048

REACTIONS (4)
  - Petechiae [Unknown]
  - Hot flush [Unknown]
  - Hepatic enzyme increased [Unknown]
  - Prescribed underdose [Unknown]
